FAERS Safety Report 10648494 (Version 3)
Quarter: 2015Q1

REPORT INFORMATION
  Report Type: Other
  Country: GB (occurrence: GB)
  Receive Date: 20141212
  Receipt Date: 20150206
  Transmission Date: 20150720
  Serious: Yes (Other)
  Sender: FDA-Public Use
  Company Number: GB-TARO PHARMACEUTICALS U.S.A., INC-2014SUN02851

PATIENT

DRUGS (20)
  1. HEXOPAL [Interacting]
     Active Substance: INOSITOL NIACINATE
     Dosage: 750 MG, BID
     Route: 048
     Dates: start: 20140828
  2. DILTIAZEM [Concomitant]
     Active Substance: DILTIAZEM
     Dosage: 180 MG, BID
     Route: 065
  3. WARFARIN [Suspect]
     Active Substance: WARFARIN
     Indication: PRODUCT USED FOR UNKNOWN INDICATION
     Dosage: UNK
     Route: 065
  4. HEXOPAL [Interacting]
     Active Substance: INOSITOL NIACINATE
     Dosage: 750 MG, BID
     Route: 048
  5. ISOSORBIDE DINITRATE. [Concomitant]
     Active Substance: ISOSORBIDE DINITRATE
  6. ISOSORBIDE DINITRATE. [Concomitant]
     Active Substance: ISOSORBIDE DINITRATE
  7. OLMESARTAN [Concomitant]
     Active Substance: OLMESARTAN
  8. BETAHISTINE [Concomitant]
     Active Substance: BETAHISTINE
  9. HEXOPAL [Interacting]
     Active Substance: INOSITOL NIACINATE
     Indication: INTERMITTENT CLAUDICATION
     Dosage: 500 MG, TID
     Route: 048
     Dates: start: 20140828
  10. DILTIAZEM [Concomitant]
     Active Substance: DILTIAZEM
  11. OLMESARTAN [Concomitant]
     Active Substance: OLMESARTAN
     Dosage: 20 MG, QD
     Route: 065
  12. ATORVASTATIN [Concomitant]
     Active Substance: ATORVASTATIN
  13. BETAHISTINE [Concomitant]
     Active Substance: BETAHISTINE
  14. TAMSULOSIN [Concomitant]
     Active Substance: TAMSULOSIN
     Dosage: 400 MCG, QD
     Route: 065
  15. ATORVASTATIN [Concomitant]
     Active Substance: ATORVASTATIN
     Dosage: 10 MG, QD
     Route: 065
  16. ISOSORBIDE DINITRATE. [Concomitant]
     Active Substance: ISOSORBIDE DINITRATE
     Dosage: 40 MG, BID
     Route: 065
  17. OLMESARTAN [Concomitant]
     Active Substance: OLMESARTAN
  18. BETAHISTINE [Concomitant]
     Active Substance: BETAHISTINE
     Dosage: 16 MG, TID
     Route: 065
  19. ATORVASTATIN [Concomitant]
     Active Substance: ATORVASTATIN
  20. DILTIAZEM [Concomitant]
     Active Substance: DILTIAZEM

REACTIONS (2)
  - Drug interaction [Recovered/Resolved]
  - International normalised ratio decreased [Recovered/Resolved]

NARRATIVE: CASE EVENT DATE: 201411
